FAERS Safety Report 4757759-3 (Version None)
Quarter: 2005Q3

REPORT INFORMATION
  Report Type: 
  Country: None (occurrence: None)
  Receive Date: 20050830
  Receipt Date: 20050817
  Transmission Date: 20060218
  Serious: Yes (Death, Other)
  Sender: FDA-Public Use
  Company Number: 2005117584

PATIENT
  Age: 3 Year
  Sex: Female
  Weight: 15 kg

DRUGS (5)
  1. METHYLPREDNISOLONE SODIUM SUCCINATE [Suspect]
     Indication: TOXIC EPIDERMAL NECROLYSIS
     Dosage: 125 MG/DAY
  2. PREDNISONE [Suspect]
     Indication: TOXIC EPIDERMAL NECROLYSIS
  3. DALTEPARIN SODIUM [Suspect]
     Indication: HAEMORRHAGE
     Dosage: 100 IU/HR
  4. HEPARIN [Concomitant]
  5. NAFAMOSTAT MESILATE (NAFAMOSTAT MESILATE) [Concomitant]

REACTIONS (25)
  - ACTIVATED PARTIAL THROMBOPLASTIN TIME PROLONGED [None]
  - ANAEMIA [None]
  - BLISTER [None]
  - BLOOD ELECTROLYTES ABNORMAL [None]
  - BLOOD PRESSURE DECREASED [None]
  - HAEMORRHAGE [None]
  - HEPATIC CONGESTION [None]
  - HEPATIC FUNCTION ABNORMAL [None]
  - HYPOPROTEINAEMIA [None]
  - IMMUNOSUPPRESSION [None]
  - INCREASED BRONCHIAL SECRETION [None]
  - JAUNDICE [None]
  - MUCOSAL HAEMORRHAGE [None]
  - PNEUMOCOCCAL INFECTION [None]
  - PNEUMOMEDIASTINUM [None]
  - PNEUMONIA BACTERIAL [None]
  - PNEUMOTHORAX [None]
  - PULMONARY HAEMORRHAGE [None]
  - RESPIRATORY ACIDOSIS [None]
  - RESPIRATORY FAILURE [None]
  - SKIN HAEMORRHAGE [None]
  - SKIN ULCER [None]
  - SPUTUM CULTURE POSITIVE [None]
  - STAPHYLOCOCCAL INFECTION [None]
  - WHITE BLOOD CELL COUNT DECREASED [None]
